FAERS Safety Report 22609560 (Version 1)
Quarter: 2023Q2

REPORT INFORMATION
  Report Type: Report from Study
  Country: US (occurrence: US)
  Receive Date: 20230616
  Receipt Date: 20230616
  Transmission Date: 20230722
  Serious: Yes (Other)
  Sender: FDA-Public Use
  Company Number: US-REGENERON PHARMACEUTICALS, INC.-2023-076575

PATIENT
  Sex: Female

DRUGS (1)
  1. EVINACUMAB [Suspect]
     Active Substance: EVINACUMAB
     Indication: Type IIa hyperlipidaemia
     Dosage: UNK
     Route: 042
     Dates: start: 2022

REACTIONS (1)
  - Macular degeneration [Not Recovered/Not Resolved]

NARRATIVE: CASE EVENT DATE: 20220101
